FAERS Safety Report 16849051 (Version 1)
Quarter: 2019Q3

REPORT INFORMATION
  Report Type: Report from Study
  Country: US (occurrence: US)
  Receive Date: 20190925
  Receipt Date: 20190925
  Transmission Date: 20191005
  Serious: Yes (Other)
  Sender: FDA-Public Use
  Company Number: US-BRISTOL-MYERS SQUIBB COMPANY-BMS-2019-089543

PATIENT
  Sex: Female
  Weight: 68.95 kg

DRUGS (3)
  1. ABATACEPT [Suspect]
     Active Substance: ABATACEPT
     Indication: RHEUMATOID ARTHRITIS
     Dosage: 125 MILLIGRAM, QWK
     Route: 058
     Dates: start: 2014
  2. HUMIRA [Suspect]
     Active Substance: ADALIMUMAB
     Indication: RHEUMATOID ARTHRITIS
     Dosage: UNK
     Route: 065
  3. VALTREX [Concomitant]
     Active Substance: VALACYCLOVIR HYDROCHLORIDE
     Indication: PRODUCT USED FOR UNKNOWN INDICATION
     Dosage: UNK
     Route: 065

REACTIONS (10)
  - Needle issue [Unknown]
  - Body height decreased [Unknown]
  - Eating disorder [Unknown]
  - Ophthalmic herpes zoster [Unknown]
  - Osteoporosis [Unknown]
  - Weight increased [Unknown]
  - Product communication issue [Unknown]
  - Rheumatoid arthritis [Unknown]
  - Influenza [Unknown]
  - Incorrect dose administered [Unknown]
